FAERS Safety Report 15352078 (Version 1)
Quarter: 2018Q3

REPORT INFORMATION
  Report Type: Spontaneous
  Country: US (occurrence: US)
  Receive Date: 20180905
  Receipt Date: 20180905
  Transmission Date: 20181010
  Serious: Yes (Hospitalization)
  Sender: FDA-Public Use
  Company Number: US-PFIZER INC-2018302508

PATIENT
  Age: 91 Year
  Sex: Male
  Weight: 72.11 kg

DRUGS (3)
  1. SUTENT [Suspect]
     Active Substance: SUNITINIB MALATE
     Indication: RENAL CELL CARCINOMA
     Dosage: 50 MG, CYCLIC (DAYS 1?28 Q42DAYS)
     Route: 048
     Dates: start: 20180718
  2. SUTENT [Suspect]
     Active Substance: SUNITINIB MALATE
     Dosage: 50 MG, CYCLIC (DAYS 1?14 Q21 DAYS)
     Route: 048
  3. SUTENT [Suspect]
     Active Substance: SUNITINIB MALATE
     Indication: METASTATIC RENAL CELL CARCINOMA
     Dosage: 50 MG, CYCLIC (1 WEEK ON AND 1 WEEK OFF/DAYS 1?7 Q 14 DAYS)
     Route: 048

REACTIONS (7)
  - Musculoskeletal pain [Unknown]
  - Viral infection [Unknown]
  - Asthenia [Unknown]
  - Neoplasm progression [Unknown]
  - Confusional state [Unknown]
  - Productive cough [Unknown]
  - Chest discomfort [Unknown]

NARRATIVE: CASE EVENT DATE: 20180806
